FAERS Safety Report 10129916 (Version 1)
Quarter: 2014Q2

REPORT INFORMATION
  Report Type: Spontaneous
  Country: US (occurrence: US)
  Receive Date: 20140428
  Receipt Date: 20140428
  Transmission Date: 20141212
  Serious: No
  Sender: FDA-Public Use
  Company Number: US-BAYER-2014-061550

PATIENT
  Age: 94 Year
  Sex: Female
  Weight: 61.68 kg

DRUGS (1)
  1. ALEVE CAPLET [Suspect]
     Dosage: 2 DF, PRN
     Route: 048

REACTIONS (2)
  - Therapeutic response changed [None]
  - Expired product administered [None]
